FAERS Safety Report 5227355-2 (Version None)
Quarter: 2007Q1

REPORT INFORMATION
  Report Type: 
  Country: None (occurrence: None)
  Receive Date: 20070130
  Receipt Date: 20070118
  Transmission Date: 20070707
  Serious: Yes (Hospitalization)
  Sender: FDA-Public Use
  Company Number: 1-14559601

PATIENT
  Sex: Male
  Weight: 90.1 kg

DRUGS (7)
  1. PREDNISONE [Suspect]
     Indication: ECZEMA
     Dosage: 5 TO 20MG ONCE DAILY, ORAL
     Route: 048
     Dates: start: 19950101, end: 20061101
  2. AZATHIOPRINE [Suspect]
     Dosage: 300 TO 100 MG, ORAL
     Route: 048
     Dates: start: 19950101
  3. COUMADIN [Suspect]
     Indication: THROMBOSIS
     Dosage: 7.5MG
     Dates: start: 20060401, end: 20061101
  4. ACTONEL [Suspect]
     Indication: OSTEOPOROSIS
     Dates: start: 20060401, end: 20060801
  5. FOSAMAX [Concomitant]
  6. CLOBETASOL PROPIONATE [Concomitant]
  7. BONIVA [Concomitant]

REACTIONS (28)
  - BODY HEIGHT DECREASED [None]
  - CATARACT [None]
  - CLAVICLE FRACTURE [None]
  - CONTUSION [None]
  - COUGH [None]
  - DYSPHAGIA [None]
  - DYSPHONIA [None]
  - ERYTHEMA [None]
  - FALL [None]
  - GASTRIC HAEMORRHAGE [None]
  - HAEMATEMESIS [None]
  - JAW DISORDER [None]
  - LARGE INTESTINAL HAEMORRHAGE [None]
  - LOWER LIMB FRACTURE [None]
  - MUSCLE SPASMS [None]
  - OEDEMA PERIPHERAL [None]
  - OESOPHAGEAL DISORDER [None]
  - OSTEOPOROSIS [None]
  - PAIN IN EXTREMITY [None]
  - POST PROCEDURAL COMPLICATION [None]
  - PRURITUS [None]
  - RASH [None]
  - RIB FRACTURE [None]
  - SCAB [None]
  - SKIN CANCER [None]
  - SKIN HAEMORRHAGE [None]
  - SPINAL FRACTURE [None]
  - THROMBOSIS [None]
